FAERS Safety Report 26158720 (Version 2)
Quarter: 2025Q4

REPORT INFORMATION
  Report Type: Spontaneous
  Country: EU (occurrence: EU)
  Receive Date: 20251215
  Receipt Date: 20251219
  Transmission Date: 20260118
  Serious: Yes (Hospitalization)
  Sender: MERCK KGAA
  Company Number: EU-Merck Healthcare KGaA-2025063819

PATIENT
  Age: 59 Year
  Sex: Female
  Weight: 71 kg

DRUGS (5)
  1. REBIF [Suspect]
     Active Substance: INTERFERON BETA-1A
     Indication: Multiple sclerosis
     Dates: start: 2016, end: 201903
  2. REBIF [Suspect]
     Active Substance: INTERFERON BETA-1A
     Dates: start: 20190320, end: 20220406
  3. REBIF [Suspect]
     Active Substance: INTERFERON BETA-1A
     Dates: start: 20220707, end: 20240513
  4. REBIF [Suspect]
     Active Substance: INTERFERON BETA-1A
     Dates: start: 20250801, end: 202509
  5. REBIF [Suspect]
     Active Substance: INTERFERON BETA-1A
     Dosage: UNTIL PRESENT

REACTIONS (2)
  - Fall [Recovered/Resolved]
  - Tendon injury [Recovered/Resolved]

NARRATIVE: CASE EVENT DATE: 20250801
